FAERS Safety Report 5159438-X (Version None)
Quarter: 2006Q4

REPORT INFORMATION
  Report Type: 
  Country: None (occurrence: None)
  Receive Date: 20061122
  Receipt Date: 20061122
  Transmission Date: 20070319
  Serious: Yes (Hospitalization)
  Sender: FDA-Public Use
  Company Number: None

PATIENT
  Age: 82 Year
  Sex: Male

DRUGS (1)
  1. INDOMETHACIN [Suspect]
     Indication: GOUT
     Dosage: ;25.0 MILLIGRAM(S);3;1
     Dates: start: 20060815, end: 20060902

REACTIONS (4)
  - BLOOD CREATININE INCREASED [None]
  - CHILLS [None]
  - EOSINOPHILS URINE PRESENT [None]
  - RASH [None]
